FAERS Safety Report 6235929-5 (Version None)
Quarter: 2009Q2

REPORT INFORMATION
  Report Type: 
  Country: None (occurrence: None)
  Receive Date: 20090619
  Receipt Date: 20090608
  Transmission Date: 20091009
  Serious: Yes (Hospitalization)
  Sender: FDA-Public Use
  Company Number: PHHY2009FR22285

PATIENT
  Age: 81 Year
  Sex: Female

DRUGS (5)
  1. CO-TAREG [Suspect]
     Dosage: 160/12.5 MG
     Dates: end: 20090301
  2. DEROXAT [Suspect]
     Indication: OSTEOARTHRITIS
     Dosage: UNK
     Dates: start: 20090227, end: 20090301
  3. NEO-MERCAZOLE TAB [Concomitant]
     Dosage: 5 MG, BID
  4. LIPANTHYL [Concomitant]
     Dosage: 1 DF DAILY
  5. CEPHYL [Concomitant]

REACTIONS (5)
  - ANKLE FRACTURE [None]
  - FALL [None]
  - HYPONATRAEMIA [None]
  - JOINT INJURY [None]
  - MALAISE [None]
